FAERS Safety Report 8604941-0 (Version None)
Quarter: 2012Q3

REPORT INFORMATION
  Report Type: 
  Country: None (occurrence: None)
  Receive Date: 20120820
  Receipt Date: 20120813
  Transmission Date: 20120928
  Serious: Yes (Other)
  Sender: FDA-Public Use
  Company Number: US-PFIZER INC-2012198472

PATIENT
  Age: 75 Year
  Sex: Female
  Weight: 63.039 kg

DRUGS (8)
  1. REVATIO [Suspect]
     Indication: PULMONARY HYPERTENSION
     Dosage: UNK, 3X/DAY
     Route: 048
     Dates: start: 20120601
  2. PAROXETINE [Concomitant]
     Indication: ANXIETY
     Dosage: 10 MG, DAILY
  3. LEVOTHYROXINE [Concomitant]
     Indication: THYROID DISORDER
     Dosage: 0.125 MG, DAILY
  4. PRAVASTATIN [Concomitant]
     Indication: BLOOD CHOLESTEROL INCREASED
     Dosage: 40 MG, DAILY
  5. WARFARIN [Concomitant]
     Indication: ANTICOAGULANT THERAPY
     Dosage: 5 MG, DAILY
  6. LASIX [Concomitant]
     Indication: DIURETIC THERAPY
     Dosage: 20 MG, DAILY
  7. PANTOPRAZOLE [Concomitant]
     Indication: GASTROOESOPHAGEAL REFLUX DISEASE
     Dosage: 40 MG, 2X/DAY
  8. ZOLPIDEM [Concomitant]
     Indication: SLEEP DISORDER
     Dosage: 10 MG, DAILY

REACTIONS (2)
  - DENTAL CARIES [None]
  - TOOTH ABSCESS [None]
